FAERS Safety Report 11248139 (Version 1)
Quarter: 2015Q2

REPORT INFORMATION
  Report Type: Report from Study
  Country: US (occurrence: None)
  Receive Date: 20150617
  Receipt Date: 20150617
  Transmission Date: 20150821
  Serious: No
  Sender: FDA-Public Use
  Company Number: 2014TASUS000512

PATIENT
  Age: 61 Year
  Sex: Female

DRUGS (10)
  1. PREMARIN [Concomitant]
     Active Substance: ESTROGENS, CONJUGATED
  2. OXYBUTYNIN [Concomitant]
     Active Substance: OXYBUTYNIN
  3. HETLIOZ [Suspect]
     Active Substance: TASIMELTEON
     Indication: CIRCADIAN RHYTHM SLEEP DISORDER
     Dosage: 20 MG, QHS, ORAL
     Route: 048
     Dates: start: 20140703, end: 20140710
  4. GLYBURIDE. [Concomitant]
     Active Substance: GLYBURIDE
  5. LEVOTHYROXINE (LEVOTHYROXINE SODIUM) [Concomitant]
  6. TEMAZEPAM. [Concomitant]
     Active Substance: TEMAZEPAM
  7. METFORMIN [Concomitant]
     Active Substance: METFORMIN HYDROCHLORIDE
  8. SULINDAC. [Concomitant]
     Active Substance: SULINDAC
  9. ATORVASTATIN [Concomitant]
     Active Substance: ATORVASTATIN
  10. DOXEPIN (DOXEPIN HYDROCHLORIDE) [Concomitant]

REACTIONS (4)
  - Insomnia [None]
  - Bladder disorder [None]
  - Feeling abnormal [None]
  - Urine output decreased [None]

NARRATIVE: CASE EVENT DATE: 20140703
